FAERS Safety Report 8956103 (Version 2)
Quarter: 2013Q1

REPORT INFORMATION
  Report Type: Spontaneous
  Country: US (occurrence: US)
  Receive Date: 20121210
  Receipt Date: 20130103
  Transmission Date: 20140127
  Serious: Yes (Other)
  Sender: FDA-Public Use
  Company Number: US-BAYER-2012-127930

PATIENT
  Age: 29 Year
  Sex: Female
  Weight: 109 kg

DRUGS (11)
  1. YASMIN [Suspect]
  2. YAZ [Suspect]
  3. OCELLA [Suspect]
  4. STEROID [Concomitant]
  5. CHONDROITIN [Concomitant]
  6. IBUPROFEN [Concomitant]
  7. ALEVE [Concomitant]
  8. CHANTIX [Concomitant]
  9. CLARITIN [Concomitant]
  10. DICYCLOMINE HCL [Concomitant]
  11. CITALOPRAM HYDROBROMIDE [Concomitant]

REACTIONS (1)
  - Thrombophlebitis superficial [None]
